FAERS Safety Report 7416975-2 (Version None)
Quarter: 2011Q2

REPORT INFORMATION
  Report Type: 
  Country: None (occurrence: None)
  Receive Date: 20110407
  Receipt Date: 20110329
  Transmission Date: 20111010
  Serious: Yes (Hospitalization)
  Sender: FDA-Public Use
  Company Number: TCI2011A02248

PATIENT
  Age: 47 Year
  Sex: Female

DRUGS (2)
  1. ORAL ANTIDIABETICS [Concomitant]
  2. ACTOS [Suspect]
     Dosage: 15 MG (15 MG, 1 D), PER ORAL; 22.5 MG (22.5 MG, 1 D), PER ORAL; 30 MG (30 MG, 1 D), PER ORAL
     Route: 048
     Dates: start: 20090612

REACTIONS (1)
  - BREAST CANCER [None]
